FAERS Safety Report 25796188 (Version 1)
Quarter: 2025Q3

REPORT INFORMATION
  Report Type: Spontaneous
  Country: US (occurrence: US)
  Receive Date: 20250912
  Receipt Date: 20250912
  Transmission Date: 20251020
  Serious: No
  Sender: BRISTOL-MYERS SQUIBB COMPANY
  Company Number: US-BRISTOL-MYERS SQUIBB COMPANY-2025-126092

PATIENT
  Age: 82 Year
  Sex: Female

DRUGS (1)
  1. LENALIDOMIDE [Suspect]
     Active Substance: LENALIDOMIDE
     Indication: Thrombocytopenia
     Dosage: TAKE 1 CAPSULE BY MOUTH 2 TIMES A WEEK

REACTIONS (2)
  - Rash pruritic [Recovering/Resolving]
  - Off label use [Unknown]
